FAERS Safety Report 4751653-X (Version None)
Quarter: 2005Q3

REPORT INFORMATION
  Report Type: 
  Country: None (occurrence: None)
  Receive Date: 20050823
  Receipt Date: 20050823
  Transmission Date: 20060218
  Serious: Yes (Other)
  Sender: FDA-Public Use
  Company Number: None

PATIENT
  Age: 20 Year
  Sex: Female
  Weight: 46.2669 kg

DRUGS (4)
  1. ZOLOFT [Suspect]
     Indication: ANXIETY
     Dosage: 100 MG ONCE A DAY PO
     Route: 048
     Dates: start: 20050120, end: 20050818
  2. ZOLOFT [Suspect]
     Indication: DYSTHYMIC DISORDER
     Dosage: 100 MG ONCE A DAY PO
     Route: 048
     Dates: start: 20050120, end: 20050818
  3. ZOLOFT [Suspect]
     Indication: EATING DISORDER
     Dosage: 100 MG ONCE A DAY PO
     Route: 048
     Dates: start: 20050120, end: 20050818
  4. ZOLOFT [Suspect]
     Indication: OBSESSIVE-COMPULSIVE DISORDER
     Dosage: 100 MG ONCE A DAY PO
     Route: 048
     Dates: start: 20050120, end: 20050818

REACTIONS (9)
  - ANXIETY [None]
  - CONDITION AGGRAVATED [None]
  - DEPRESSION [None]
  - DRUG INEFFECTIVE [None]
  - DRUG WITHDRAWAL SYNDROME [None]
  - IRRITABILITY [None]
  - MUSCULOSKELETAL STIFFNESS [None]
  - NECK PAIN [None]
  - PAIN [None]
